FAERS Safety Report 6412262-X (Version None)
Quarter: 2009Q4

REPORT INFORMATION
  Report Type: 
  Country: None (occurrence: None)
  Receive Date: 20091023
  Receipt Date: 20091008
  Transmission Date: 20100525
  Serious: Yes (Life-Threatening, Hospitalization)
  Sender: FDA-Public Use
  Company Number: FR-PFIZER INC-2009285473

PATIENT
  Age: 75 Year

DRUGS (9)
  1. IRINOTECAN HCL [Suspect]
     Indication: COLORECTAL CANCER
     Dosage: 180 MG/M2 (240 MG)
     Dates: start: 20060728
  2. FLUOROURACIL [Suspect]
     Indication: COLORECTAL CANCER
     Dosage: 400 MG/M2 (650 MG)
     Route: 040
     Dates: start: 20060728
  3. FLUOROURACIL [Suspect]
     Dosage: 2400 MG/M2 (4000 MG)
     Route: 042
     Dates: start: 20060728
  4. FOLINIC ACID [Suspect]
     Indication: COLORECTAL CANCER
     Dosage: 200 MG/M2 (332 MG)
     Dates: start: 20060728
  5. ZOPHREN [Concomitant]
     Dosage: 8 MG
  6. INIPOMP [Concomitant]
     Dosage: 1 DF, 1X/DAY
     Dates: start: 20060601
  7. ATENOLOL [Concomitant]
     Dosage: 1 DF, 1X/DAY
     Dates: start: 20020101
  8. LOPERAMIDE HYDROCHLORIDE [Concomitant]
     Dosage: AS NEEDED
     Dates: start: 20060601
  9. DOMPERIDONE [Concomitant]
     Dosage: AS NEEDED
     Dates: start: 20060601

REACTIONS (1)
  - PERITONITIS [None]
